FAERS Safety Report 14018520 (Version 1)
Quarter: 2017Q3

REPORT INFORMATION
  Report Type: Spontaneous
  Country: US (occurrence: US)
  Receive Date: 20170928
  Receipt Date: 20170928
  Transmission Date: 20171128
  Serious: Yes (Other)
  Sender: FDA-Public Use
  Company Number: US-ABBVIE-17K-163-2114729-00

PATIENT
  Age: 42 Year
  Sex: Female
  Weight: 66.74 kg

DRUGS (4)
  1. HUMIRA [Suspect]
     Active Substance: ADALIMUMAB
     Dosage: 80MG OUT OF 160MG LOADING DOSE
     Route: 058
     Dates: start: 20170913, end: 20170913
  2. XANAX [Concomitant]
     Active Substance: ALPRAZOLAM
     Indication: ANXIETY
  3. HUMIRA [Suspect]
     Active Substance: ADALIMUMAB
     Indication: CROHN^S DISEASE
     Route: 058
     Dates: start: 20150207, end: 201606
  4. HUMIRA [Suspect]
     Active Substance: ADALIMUMAB
     Dosage: 80MG OUT OF 160MG LOADING DOSE
     Route: 058
     Dates: start: 20170912, end: 20170912

REACTIONS (4)
  - Photophobia [Not Recovered/Not Resolved]
  - Headache [Recovering/Resolving]
  - Miosis [Not Recovered/Not Resolved]
  - Vision blurred [Not Recovered/Not Resolved]

NARRATIVE: CASE EVENT DATE: 20170921
